FAERS Safety Report 18257350 (Version 1)
Quarter: 2020Q3

REPORT INFORMATION
  Report Type: Spontaneous
  Country: US (occurrence: US)
  Receive Date: 20200911
  Receipt Date: 20200911
  Transmission Date: 20201103
  Serious: No
  Sender: FDA-Public Use
  Company Number: US-SA-2020SA247061

PATIENT

DRUGS (2)
  1. DUPIXENT [Suspect]
     Active Substance: DUPILUMAB
     Indication: PRODUCT USED FOR UNKNOWN INDICATION
  2. DUPIXENT [Suspect]
     Active Substance: DUPILUMAB
     Indication: DERMATITIS ATOPIC
     Dosage: 300 MG, QOW
     Route: 058
     Dates: start: 202006

REACTIONS (6)
  - Hyperhidrosis [Unknown]
  - Urticaria [Unknown]
  - Middle insomnia [Unknown]
  - Unevaluable event [Unknown]
  - Rash [Unknown]
  - Rebound eczema [Unknown]

NARRATIVE: CASE EVENT DATE: 2020
